FAERS Safety Report 6168824-0 (Version None)
Quarter: 2009Q2

REPORT INFORMATION
  Report Type: 
  Country: None (occurrence: None)
  Receive Date: 20090427
  Receipt Date: 20090410
  Transmission Date: 20091009
  Serious: Yes (Hospitalization)
  Sender: FDA-Public Use
  Company Number: JP-ROCHE-603249

PATIENT
  Sex: Male
  Weight: 55 kg

DRUGS (3)
  1. XELODA [Suspect]
     Indication: RECTAL CANCER METASTATIC
     Dosage: DRUG: XELODA 300, 2 WEEKS ADMINISTRATION FOLLOWED BY 1 WEEK REST
     Route: 048
     Dates: start: 20071226, end: 20080108
  2. XELODA [Suspect]
     Dosage: 2 WEEKS ADMINSTRATION FOLLOWED BY 1 WEEK REST
     Route: 048
     Dates: start: 20080116, end: 20080117
  3. XELODA [Suspect]
     Dosage: 2 WEEKS ADMINISTRATION FOLLOWED BY 1 WEEK REST
     Route: 048
     Dates: start: 20080220, end: 20080304

REACTIONS (1)
  - ILEUS [None]
